FAERS Safety Report 5082655-4 (Version None)
Quarter: 2006Q3

REPORT INFORMATION
  Report Type: 
  Country: None (occurrence: None)
  Receive Date: 20060817
  Receipt Date: 20060621
  Transmission Date: 20061208
  Serious: Yes (Other)
  Sender: FDA-Public Use
  Company Number: PHBS2006BE09513

PATIENT
  Age: 69 Year
  Sex: Male

DRUGS (9)
  1. ZOMETA [Suspect]
     Indication: PROSTATE CANCER
     Dosage: 4 MG, QMO
     Route: 065
     Dates: start: 20050501, end: 20060501
  2. DECAPEPTYL [Concomitant]
     Dates: start: 20050301
  3. CASODEX [Concomitant]
     Dates: start: 20050301
  4. GLURENORM [Concomitant]
  5. GLUCOPHAGE [Concomitant]
  6. INDOCID [Concomitant]
  7. LEDERTREXATE [Concomitant]
  8. STEOVIT D3 [Concomitant]
  9. FOLIC ACID [Concomitant]

REACTIONS (1)
  - OSTEONECROSIS [None]
